FAERS Safety Report 9009442 (Version 1)
Quarter: 2013Q1

REPORT INFORMATION
  Report Type: Spontaneous
  Country: US (occurrence: US)
  Receive Date: 20130112
  Receipt Date: 20130112
  Transmission Date: 20140127
  Serious: Yes (Other)
  Sender: FDA-Public Use
  Company Number: US-009507513-1301USA001855

PATIENT
  Age: 25 Year
  Sex: Male

DRUGS (4)
  1. MONTELUKAST SODIUM [Suspect]
     Dosage: 10 MG/DAY
  2. BECLOMETHASONE DIPROPIONATE [Suspect]
     Indication: ASTHMA
  3. ALBUTEROL [Suspect]
     Indication: RHINITIS ALLERGIC
  4. FEXOFENADINE HYDROCHLORIDE [Suspect]
     Dosage: 120 MG/DAY
     Route: 048

REACTIONS (4)
  - Myalgia [Unknown]
  - Headache [Unknown]
  - Drug interaction [Unknown]
  - Arthralgia [Unknown]
